FAERS Safety Report 19418125 (Version 2)
Quarter: 2021Q4

REPORT INFORMATION
  Report Type: Spontaneous
  Country: US (occurrence: US)
  Receive Date: 20210615
  Receipt Date: 20211214
  Transmission Date: 20220303
  Serious: No
  Sender: FDA-Public Use
  Company Number: US-GLOBAL BLOOD THERAPEUTICS INC-US-GBT-20-04069

PATIENT
  Sex: Female

DRUGS (2)
  1. OXBRYTA [Suspect]
     Active Substance: VOXELOTOR
     Indication: Sickle cell disease
     Route: 048
     Dates: start: 20200603
  2. OXBRYTA [Suspect]
     Active Substance: VOXELOTOR

REACTIONS (4)
  - Flatulence [Unknown]
  - Nausea [Not Recovered/Not Resolved]
  - Diarrhoea [Unknown]
  - Product dose omission issue [Unknown]

NARRATIVE: CASE EVENT DATE: 20200101
